FAERS Safety Report 24001663 (Version 1)
Quarter: 2024Q2

REPORT INFORMATION
  Report Type: Spontaneous
  Country: ID (occurrence: ID)
  Receive Date: 20240621
  Receipt Date: 20240621
  Transmission Date: 20240716
  Serious: Yes (Other)
  Sender: FDA-Public Use
  Company Number: ID-VER-202400003

PATIENT
  Sex: Female

DRUGS (1)
  1. TRIPTORELIN PAMOATE [Suspect]
     Active Substance: TRIPTORELIN PAMOATE
     Indication: Endometriosis
     Dosage: 3.75 MILLIGRAM, POWDER AND SOLVENT FOR SUSPENSION FOR INJECTION?DOSE: 3.75 MILLIGRAM(S), 1 IN 30 DAY
     Route: 030

REACTIONS (1)
  - Heavy menstrual bleeding [Unknown]
